FAERS Safety Report 12966398 (Version 3)
Quarter: 2017Q1

REPORT INFORMATION
  Report Type: Spontaneous
  Country: FR (occurrence: FR)
  Receive Date: 20161122
  Receipt Date: 20170105
  Transmission Date: 20170428
  Serious: Yes (Hospitalization, Other)
  Sender: FDA-Public Use
  Company Number: FR-GILEAD-2016-0244608

PATIENT
  Age: 45 Year
  Sex: Female
  Weight: 52 kg

DRUGS (12)
  1. DOLUTEGRAVIR [Concomitant]
     Active Substance: DOLUTEGRAVIR
     Dosage: 50 MG, BID
  2. CHLORHYDRATE DE PROPRANOLOL [Concomitant]
  3. MACROGOL [Concomitant]
     Active Substance: POLYETHYLENE GLYCOLS
  4. VIREAD [Suspect]
     Active Substance: TENOFOVIR DISOPROXIL FUMARATE
     Indication: HIV INFECTION
     Dosage: 245 MG, UNK
     Route: 048
     Dates: start: 20111205, end: 20131220
  5. RALTEGRAVIR. [Concomitant]
     Active Substance: RALTEGRAVIR
     Dosage: 400 MG, BID
  6. CHOLECALCIFEROL [Concomitant]
     Active Substance: CHOLECALCIFEROL
  7. EMTRIVA [Suspect]
     Active Substance: EMTRICITABINE
     Indication: HIV INFECTION
     Dosage: 200 MG, UNK
     Route: 048
     Dates: start: 20111205, end: 20131220
  8. DARUNAVIR [Concomitant]
     Active Substance: DARUNAVIR
     Dosage: 800 MG, QD
     Dates: start: 20111205
  9. TIROPRAMIDE [Concomitant]
     Active Substance: TIROPRAMIDE
  10. DARUNAVIR [Concomitant]
     Active Substance: DARUNAVIR
     Dosage: 600 MG, BID
  11. RITONAVIR. [Concomitant]
     Active Substance: RITONAVIR
     Dosage: 100 MG, UNK
     Route: 048
     Dates: start: 20111205
  12. MARAVIROC [Concomitant]
     Active Substance: MARAVIROC
     Dosage: 150 MG, BID

REACTIONS (6)
  - Drug ineffective [Unknown]
  - Anxiety [Unknown]
  - Cerebellar syndrome [Unknown]
  - CSF virus identified [Unknown]
  - Viral mutation identified [Unknown]
  - Ataxia [Unknown]
